FAERS Safety Report 16661761 (Version 1)
Quarter: 2019Q3

REPORT INFORMATION
  Report Type: Spontaneous
  Country: US (occurrence: US)
  Receive Date: 20190802
  Receipt Date: 20190802
  Transmission Date: 20191004
  Serious: No
  Sender: FDA-Public Use
  Company Number: US-ASTRAZENECA-2019SE98250

PATIENT
  Sex: Female

DRUGS (2)
  1. FASENRA [Suspect]
     Active Substance: BENRALIZUMAB
     Indication: SEVERE ASTHMA WITH FUNGAL SENSITISATION
     Dosage: 30.0MG UNKNOWN
     Route: 058
     Dates: start: 20190705
  2. FASENRA [Suspect]
     Active Substance: BENRALIZUMAB
     Indication: SEVERE ASTHMA WITH FUNGAL SENSITISATION
     Dosage: 30.0MG UNKNOWN
     Route: 058
     Dates: start: 201906

REACTIONS (1)
  - Oropharyngeal pain [Unknown]
